FAERS Safety Report 5653406-7 (Version None)
Quarter: 2008Q1

REPORT INFORMATION
  Report Type: 
  Country: None (occurrence: None)
  Receive Date: 20080305
  Receipt Date: 20080222
  Transmission Date: 20080703
  Serious: Yes (Hospitalization)
  Sender: FDA-Public Use
  Company Number: APP200800120

PATIENT
  Age: 67 Year
  Sex: Female
  Weight: 72.893 kg

DRUGS (3)
  1. HEPARIN SODIUM INJECTION [Suspect]
     Indication: DRUG USE FOR UNKNOWN INDICATION
     Dosage: SUBCUTANEOUS,ONCE
     Route: 058
     Dates: start: 20080106, end: 20080106
  2. HEPARIN SODIUM INJECTION [Suspect]
     Indication: DRUG USE FOR UNKNOWN INDICATION
     Dosage: SUBCUTANEOUS,ONCE
     Route: 058
     Dates: start: 20080115, end: 20080115
  3. LOPRESSOR [Concomitant]

REACTIONS (4)
  - ABDOMINAL PAIN [None]
  - BLOOD PRESSURE DECREASED [None]
  - MALAISE [None]
  - TACHYCARDIA [None]
